FAERS Safety Report 5715086-1 (Version None)
Quarter: 2008Q2

REPORT INFORMATION
  Report Type: 
  Country: None (occurrence: None)
  Receive Date: 20080423
  Receipt Date: 20080417
  Transmission Date: 20081010
  Serious: Yes (Hospitalization, Other)
  Sender: FDA-Public Use
  Company Number: US-BOEHRINGER INGELHEIM GMBH, GERMANY-2008-BP-04472BP

PATIENT
  Sex: Female

DRUGS (4)
  1. ALUPENT [Suspect]
     Indication: CHRONIC OBSTRUCTIVE PULMONARY DISEASE
     Route: 055
     Dates: start: 19900101, end: 19900101
  2. ALUPENT [Suspect]
     Indication: DYSPNOEA
  3. ALUPENT [Suspect]
     Indication: BRONCHITIS
  4. SPIRIVA [Concomitant]
     Indication: DYSPNOEA

REACTIONS (2)
  - COMA [None]
  - DRUG HYPERSENSITIVITY [None]
